FAERS Safety Report 6419565-3 (Version None)
Quarter: 2009Q4

REPORT INFORMATION
  Report Type: 
  Country: None (occurrence: None)
  Receive Date: 20091027
  Receipt Date: 20091013
  Transmission Date: 20100525
  Serious: Yes (Life-Threatening, Hospitalization, Other)
  Sender: FDA-Public Use
  Company Number: 2009PV000071

PATIENT
  Age: 11 Year
  Sex: Male
  Weight: 34 kg

DRUGS (3)
  1. DEPOCYT [Suspect]
     Indication: MENINGIOMA MALIGNANT
     Dosage: 35 MG; 1X; ITVN
     Route: 042
     Dates: start: 20091008, end: 20091008
  2. SOLU-CORTEF [Concomitant]
  3. OMEPRAZOLE [Concomitant]

REACTIONS (6)
  - BLOOD PRESSURE DECREASED [None]
  - DIARRHOEA [None]
  - FLUSHING [None]
  - HEADACHE [None]
  - HYPERSENSITIVITY [None]
  - NAUSEA [None]
